FAERS Safety Report 14719481 (Version 1)
Quarter: 2018Q2

REPORT INFORMATION
  Report Type: Spontaneous
  Country: US (occurrence: US)
  Receive Date: 20180405
  Receipt Date: 20180405
  Transmission Date: 20180711
  Serious: No
  Sender: FDA-Public Use
  Company Number: US-PFIZER INC-2018135457

PATIENT
  Age: 44 Year
  Sex: Female
  Weight: 90.72 kg

DRUGS (8)
  1. ACETAMINOPHEN - HYDROCODONE [Concomitant]
     Indication: PAIN
     Dosage: [HYDROCODONE, 10MG/ACETAMINOPHEN, 325MG]MAXIMUM OF EVERY 6 HOURS DAILY, AS NEEDED
  2. ATIVAN [Concomitant]
     Active Substance: LORAZEPAM
     Indication: VOMITING
     Dosage: 1/2 TABLET SUBLIGUAL
     Route: 060
  3. NASCOBAL [Concomitant]
     Active Substance: CYANOCOBALAMIN
     Indication: DIZZINESS
     Dosage: 500 MCG SPRAY, 1 SPRAY ONE NOSTRIL ONCE WEEKLY
  4. GENOTROPIN [Suspect]
     Active Substance: SOMATROPIN
     Dosage: 1.0MG ORIGINALLY ONCE DAILY AT NIGHT INJECTION INTO HER BELLY FAT
  5. GENOTROPIN [Suspect]
     Active Substance: SOMATROPIN
     Dosage: 0.7MG ORIGINALLY ONCE DAILY AT NIGHT INJECTION INTO HER BELLY FAT
  6. LOSARTAN. [Concomitant]
     Active Substance: LOSARTAN
     Indication: PULSE ABNORMAL
     Dosage: 25MG, 1 PILL IN THE MORNING AND 1 AT BEDTIME
  7. GENOTROPIN [Suspect]
     Active Substance: SOMATROPIN
     Indication: CARDIAC DISORDER
     Dosage: 0.3MG ORIGINALLY ONCE DAILY AT NIGHT INJECTION INTO HER BELLY FAT
  8. NUVIGIL [Concomitant]
     Active Substance: ARMODAFINIL
     Indication: NERVOUS SYSTEM DISORDER
     Dosage: 150MG, HALF A TABLET IN THE MORNING AND HALF A TABLET AT 4PM

REACTIONS (8)
  - Incorrect dosage administered [Not Recovered/Not Resolved]
  - Device issue [Not Recovered/Not Resolved]
  - Therapeutic response unexpected [Not Recovered/Not Resolved]
  - Drug ineffective for unapproved indication [Not Recovered/Not Resolved]
  - Asthenia [Unknown]
  - Pre-existing condition improved [Not Recovered/Not Resolved]
  - Malaise [Unknown]
  - Intentional product misuse [Not Recovered/Not Resolved]
